FAERS Safety Report 9525478 (Version 1)
Quarter: 2013Q3

REPORT INFORMATION
  Report Type: Spontaneous
  Country: US (occurrence: None)
  Receive Date: 20130913
  Receipt Date: 20130913
  Transmission Date: 20140515
  Serious: Yes (Hospitalization)
  Sender: FDA-Public Use
  Company Number: None

PATIENT
  Age: 51 Year
  Sex: Male
  Weight: 85.5 kg

DRUGS (2)
  1. TRUVADA [Suspect]
     Indication: THERAPY CHANGE
     Dosage: 1 PILL, QD, ORAL
     Route: 048
     Dates: start: 20130809, end: 20130910
  2. TRUVADA [Suspect]
     Indication: TREATMENT NONCOMPLIANCE
     Dosage: 1 PILL, QD, ORAL
     Route: 048
     Dates: start: 20130809, end: 20130910

REACTIONS (2)
  - Renal failure acute [None]
  - Hyperkalaemia [None]
